FAERS Safety Report 25311440 (Version 2)
Quarter: 2025Q2

REPORT INFORMATION
  Report Type: Spontaneous
  Country: CN (occurrence: CN)
  Receive Date: 20250514
  Receipt Date: 20250520
  Transmission Date: 20250717
  Serious: Yes (Hospitalization)
  Sender: NOVARTIS
  Company Number: CN-002147023-NVSC2025CN077134

PATIENT
  Age: 45 Year
  Sex: Male

DRUGS (6)
  1. MYCOPHENOLATE SODIUM [Suspect]
     Active Substance: MYCOPHENOLATE SODIUM
     Indication: Renal transplant
     Dosage: 3 DOSAGE FORM, BID (ENTERIC-COATED TABLETS )
     Route: 048
     Dates: start: 20250405
  2. MYCOPHENOLATE SODIUM [Suspect]
     Active Substance: MYCOPHENOLATE SODIUM
     Dosage: 1 DOSAGE FORM, BID
     Route: 048
     Dates: start: 20250406
  3. MYCOPHENOLATE SODIUM [Suspect]
     Active Substance: MYCOPHENOLATE SODIUM
     Dosage: 2 DOSAGE FORM, BID
     Route: 048
     Dates: start: 20250407
  4. MYCOPHENOLATE SODIUM [Suspect]
     Active Substance: MYCOPHENOLATE SODIUM
     Dosage: 3 DOSAGE FORM, BID
     Route: 048
     Dates: start: 20250416
  5. MYCOPHENOLATE SODIUM [Suspect]
     Active Substance: MYCOPHENOLATE SODIUM
     Dosage: 3 DOSAGE FORM, QD
     Route: 048
     Dates: start: 20250418
  6. MYCOPHENOLATE SODIUM [Suspect]
     Active Substance: MYCOPHENOLATE SODIUM
     Dosage: 2 DOSAGE FORM, BID
     Route: 048
     Dates: start: 20250424, end: 20250505

REACTIONS (3)
  - Myelosuppression [Unknown]
  - Haemoglobin decreased [Recovering/Resolving]
  - Wound secretion [Unknown]

NARRATIVE: CASE EVENT DATE: 20250406
